FAERS Safety Report 4514760-2 (Version None)
Quarter: 2004Q4

REPORT INFORMATION
  Report Type: 
  Country: None (occurrence: None)
  Receive Date: 20041201
  Receipt Date: 20041118
  Transmission Date: 20050328
  Serious: Yes (Hospitalization)
  Sender: FDA-Public Use
  Company Number: ES-JNJFOC-20041106107

PATIENT
  Age: 75 Year
  Sex: Female

DRUGS (5)
  1. INFLIXIMAB [Suspect]
     Indication: RHEUMATOID ARTHRITIS
     Route: 042
  2. METHOTREXATE [Concomitant]
  3. CORTICOIDS [Concomitant]
  4. ACFOL [Concomitant]
  5. THYROXINE [Concomitant]

REACTIONS (2)
  - LUNG INFILTRATION [None]
  - PNEUMONITIS [None]
